FAERS Safety Report 11091442 (Version 1)
Quarter: 2015Q2

REPORT INFORMATION
  Report Type: Spontaneous
  Country: PL (occurrence: PL)
  Receive Date: 20150505
  Receipt Date: 20150505
  Transmission Date: 20150821
  Serious: Yes (Hospitalization, Other)
  Sender: FDA-Public Use
  Company Number: PL-TEVA-559180ISR

PATIENT
  Age: 60 Year
  Sex: Male

DRUGS (3)
  1. ASPIRIN. [Suspect]
     Active Substance: ASPIRIN
     Route: 048
  2. CONCOR [Suspect]
     Active Substance: BISOPROLOL FUMARATE
     Route: 048
  3. DIUVER [Suspect]
     Active Substance: TORSEMIDE
     Route: 048

REACTIONS (2)
  - Rash papular [Recovered/Resolved]
  - Oral mucosa erosion [Recovered/Resolved]

NARRATIVE: CASE EVENT DATE: 20150301
